FAERS Safety Report 14122529 (Version 14)
Quarter: 2018Q1

REPORT INFORMATION
  Report Type: Report from Study
  Country: US (occurrence: US)
  Receive Date: 20171024
  Receipt Date: 20180307
  Transmission Date: 20180508
  Serious: Yes (Hospitalization, Other)
  Sender: FDA-Public Use
  Company Number: US-ACTELION-A-US2015-112034

PATIENT
  Age: 42 Year
  Sex: Female
  Weight: 54.42 kg

DRUGS (9)
  1. TRACLEER [Suspect]
     Active Substance: BOSENTAN
     Dosage: 125 MG, BID
     Route: 048
  2. ORENITRAM [Suspect]
     Active Substance: TREPROSTINIL
     Indication: PRODUCT USED FOR UNKNOWN INDICATION
     Route: 065
  3. REMODULIN [Suspect]
     Active Substance: TREPROSTINIL
     Indication: PRODUCT USED FOR UNKNOWN INDICATION
     Dosage: 65 NG/KG, PER MIN
     Route: 042
  4. TREPROSTINIL [Concomitant]
     Active Substance: TREPROSTINIL
     Dosage: 3 MG, TID
  5. TYVASO [Concomitant]
     Active Substance: TREPROSTINIL
  6. TRACLEER [Suspect]
     Active Substance: BOSENTAN
     Indication: PULMONARY ARTERIAL HYPERTENSION
     Dosage: 125 MG, BID
     Route: 048
  7. COUMADIN [Concomitant]
     Active Substance: WARFARIN SODIUM
  8. REMODULIN [Suspect]
     Active Substance: TREPROSTINIL
     Dosage: 74 NG/KG, PER MIN
     Route: 065
  9. ADCIRCA [Concomitant]
     Active Substance: TADALAFIL

REACTIONS (28)
  - Weight decreased [Unknown]
  - Infusion site pruritus [Unknown]
  - Infusion site swelling [Unknown]
  - Skin reaction [Unknown]
  - Hypersensitivity [Unknown]
  - Palpitations [Unknown]
  - Atrial septal defect [Unknown]
  - Infusion site irritation [Unknown]
  - Malaise [Unknown]
  - Device leakage [Unknown]
  - Skin burning sensation [Unknown]
  - Pain in extremity [Unknown]
  - Erythema [Unknown]
  - Pulmonary arterial hypertension [Unknown]
  - Diarrhoea [Unknown]
  - Infusion site discharge [Unknown]
  - Infusion site rash [Unknown]
  - Decreased appetite [Unknown]
  - Infusion site erythema [Unknown]
  - Infusion site vesicles [Unknown]
  - Condition aggravated [Unknown]
  - Scar [Unknown]
  - Peripheral swelling [Unknown]
  - Cardiac operation [Unknown]
  - Pain in jaw [Unknown]
  - Vomiting [Unknown]
  - Infusion site pain [Unknown]
  - Catheter removal [Unknown]
